FAERS Safety Report 12008376 (Version 1)
Quarter: 2016Q1

REPORT INFORMATION
  Report Type: Report from Study
  Country: US (occurrence: US)
  Receive Date: 20160205
  Receipt Date: 20160205
  Transmission Date: 20160526
  Serious: No
  Sender: FDA-Public Use
  Company Number: US-ABBVIE-15K-163-1442808-00

PATIENT
  Sex: Female
  Weight: 69.92 kg

DRUGS (4)
  1. FOLIC ACID. [Concomitant]
     Active Substance: FOLIC ACID
     Indication: ANAEMIA
  2. VITAMINS [Concomitant]
     Active Substance: VITAMINS
     Indication: ANAEMIA
  3. HUMIRA [Suspect]
     Active Substance: ADALIMUMAB
     Indication: RHEUMATOID ARTHRITIS
     Route: 065
  4. IRON [Concomitant]
     Active Substance: IRON
     Indication: ANAEMIA

REACTIONS (3)
  - Pain in jaw [Recovered/Resolved]
  - Hyperhidrosis [Not Recovered/Not Resolved]
  - Arthralgia [Recovered/Resolved]

NARRATIVE: CASE EVENT DATE: 2015
